FAERS Safety Report 9434375 (Version 2)
Quarter: 2013Q3

REPORT INFORMATION
  Report Type: Report from Study
  Country: US (occurrence: US)
  Receive Date: 20130801
  Receipt Date: 20130813
  Transmission Date: 20140515
  Serious: Yes (Hospitalization)
  Sender: FDA-Public Use
  Company Number: US-JNJFOC-20130713652

PATIENT
  Age: 16 Year
  Sex: Male
  Weight: 47.1 kg

DRUGS (17)
  1. REMICADE [Suspect]
     Indication: CROHN^S DISEASE
     Route: 042
     Dates: start: 20110517
  2. IBUPROFEN [Concomitant]
     Route: 065
  3. TUMS [Concomitant]
     Route: 065
  4. NEXIUM [Concomitant]
     Route: 065
  5. BENTYL [Concomitant]
     Route: 065
  6. TEGRETOL [Concomitant]
     Route: 065
  7. MIRALAX [Concomitant]
     Route: 065
  8. KENALOG [Concomitant]
     Route: 065
  9. ALBUTEROL [Concomitant]
     Route: 065
  10. DESLORATADINE [Concomitant]
     Route: 065
  11. CYPROHEPTADINE [Concomitant]
     Route: 065
  12. TUSSIN CF [Concomitant]
     Route: 065
  13. QVAR [Concomitant]
     Route: 065
  14. PATANASE [Concomitant]
     Route: 065
  15. MAXITROL [Concomitant]
     Route: 065
  16. ELAVIL [Concomitant]
     Route: 065
  17. TYLENOL [Concomitant]
     Route: 065

REACTIONS (1)
  - Ileal stenosis [Recovered/Resolved with Sequelae]
